FAERS Safety Report 19504745 (Version 2)
Quarter: 2021Q3

REPORT INFORMATION
  Report Type: Spontaneous
  Country: US (occurrence: US)
  Receive Date: 20210707
  Receipt Date: 20210726
  Transmission Date: 20211014
  Serious: Yes (Hospitalization)
  Sender: FDA-Public Use
  Company Number: US-GLAXOSMITHKLINE-US2021143305

PATIENT
  Sex: Female

DRUGS (1)
  1. ZEJULA [Suspect]
     Active Substance: NIRAPARIB
     Indication: OVARIAN CANCER
     Dosage: 200 MG, QD
     Route: 048
     Dates: start: 20210624

REACTIONS (13)
  - White blood cell count decreased [Unknown]
  - Nausea [Unknown]
  - Pain in extremity [Unknown]
  - Fatigue [Not Recovered/Not Resolved]
  - Asthenia [Recovering/Resolving]
  - Paraesthesia [Unknown]
  - Hypoaesthesia [Unknown]
  - Tongue discolouration [Unknown]
  - Musculoskeletal stiffness [Unknown]
  - Electric shock sensation [Unknown]
  - Dyspnoea [Not Recovered/Not Resolved]
  - Erythema [Unknown]
  - Platelet count decreased [Unknown]
